FAERS Safety Report 4420833-5 (Version None)
Quarter: 2004Q3

REPORT INFORMATION
  Report Type: 
  Country: None (occurrence: None)
  Receive Date: 20040809
  Receipt Date: 20040804
  Transmission Date: 20050211
  Serious: Yes (Life-Threatening, Other)
  Sender: FDA-Public Use
  Company Number: CA-JNJFOC-20040705901

PATIENT
  Sex: Female

DRUGS (5)
  1. ELMIRON [Suspect]
     Indication: CYSTITIS INTERSTITIAL
     Route: 049
  2. ADVAIR 250 DISKUS [Concomitant]
     Route: 055
  3. ADVAIR 250 DISKUS [Concomitant]
     Route: 055
  4. ALBUTEROL SULFATE [Concomitant]
     Route: 055
  5. CELESTODERM [Concomitant]
     Route: 061

REACTIONS (1)
  - CHRONIC MYELOID LEUKAEMIA [None]
